FAERS Safety Report 12175262 (Version 1)
Quarter: 2016Q1

REPORT INFORMATION
  Report Type: Spontaneous
  Country: US (occurrence: US)
  Receive Date: 20160314
  Receipt Date: 20160314
  Transmission Date: 20160526
  Serious: No
  Sender: FDA-Public Use
  Company Number: US-TEVA-633603USA

PATIENT
  Sex: Male

DRUGS (1)
  1. BUPRENORPHINE W/NALOXONE [Suspect]
     Active Substance: BUPRENORPHINE HYDROCHLORIDE\NALOXONE HYDROCHLORIDE
     Dosage: 8/2 MG
     Route: 065
     Dates: start: 2015

REACTIONS (3)
  - Drug screen positive [Unknown]
  - Weight increased [Unknown]
  - Intentional product use issue [Recovered/Resolved]
